FAERS Safety Report 12544771 (Version 5)
Quarter: 2017Q3

REPORT INFORMATION
  Report Type: Spontaneous
  Country: GB (occurrence: GB)
  Receive Date: 20160711
  Receipt Date: 20170703
  Transmission Date: 20171127
  Serious: Yes (Death, Hospitalization, Other)
  Sender: FDA-Public Use
  Company Number: GB-AUROBINDO-AUR-APL-2016-08571

PATIENT
  Age: 54 Year
  Sex: Male

DRUGS (26)
  1. PAROXETINE TABLET [Suspect]
     Active Substance: PAROXETINE
     Dosage: 20 ?L, UNK
     Route: 048
     Dates: start: 20011129
  2. FLUOXETINE [Concomitant]
     Active Substance: FLUOXETINE HYDROCHLORIDE
     Indication: PRODUCT USED FOR UNKNOWN INDICATION
     Dosage: 20 MG, UNK
     Route: 065
  3. SINEMET [Concomitant]
     Active Substance: CARBIDOPA\LEVODOPA
     Indication: PRODUCT USED FOR UNKNOWN INDICATION
     Dosage: UNK
     Route: 065
  4. MIRTAZAPINE. [Suspect]
     Active Substance: MIRTAZAPINE
     Indication: PRODUCT USED FOR UNKNOWN INDICATION
     Dosage: UNK
     Route: 065
     Dates: start: 200202, end: 20030318
  5. PAROXETINE TABLET [Suspect]
     Active Substance: PAROXETINE
     Dosage: 30 MG, UNK
     Route: 048
     Dates: start: 20111106
  6. PAXIL [Suspect]
     Active Substance: PAROXETINE HYDROCHLORIDE
     Indication: DEPRESSION
     Dosage: UNK
     Route: 048
     Dates: start: 200007, end: 20011217
  7. FLUOXETINE [Concomitant]
     Active Substance: FLUOXETINE HYDROCHLORIDE
     Indication: DEPRESSION
     Dosage: UNK
  8. FLUOXETINE [Concomitant]
     Active Substance: FLUOXETINE HYDROCHLORIDE
     Dosage: UNK
  9. SINEMET [Concomitant]
     Active Substance: CARBIDOPA\LEVODOPA
     Dosage: 1 1/2 TABLETS
     Route: 065
  10. SEROXAT [Suspect]
     Active Substance: PAROXETINE HYDROCHLORIDE
     Dosage: UNK
     Route: 048
     Dates: start: 20011129
  11. AMITRIPTYLINE [Concomitant]
     Active Substance: AMITRIPTYLINE
     Indication: PRODUCT USED FOR UNKNOWN INDICATION
     Dosage: UNK
     Route: 065
     Dates: start: 200805
  12. DIAZEPAM. [Concomitant]
     Active Substance: DIAZEPAM
     Dosage: UNK
     Route: 065
     Dates: start: 20011129
  13. PROPRANOLOL [Concomitant]
     Active Substance: PROPRANOLOL HYDROCHLORIDE
     Indication: PRODUCT USED FOR UNKNOWN INDICATION
     Dosage: 40 MG, 3 TIMES A DAY
     Route: 065
     Dates: start: 200007
  14. SEROXAT [Suspect]
     Active Substance: PAROXETINE HYDROCHLORIDE
     Indication: DEPRESSION
     Dosage: UNK
     Route: 048
     Dates: start: 200007, end: 20011217
  15. DIAZEPAM. [Concomitant]
     Active Substance: DIAZEPAM
     Indication: DEPRESSION
     Dosage: STRENGTH: 2 MG/5 MG
     Route: 065
     Dates: start: 20011101
  16. TRAMADOL. [Concomitant]
     Active Substance: TRAMADOL
     Indication: PRODUCT USED FOR UNKNOWN INDICATION
  17. GAMANIL [Concomitant]
     Indication: DEPRESSION
     Dosage: 70 MG, TWO TIMES A DAY
     Route: 065
     Dates: start: 20011201, end: 200201
  18. MIRTAZAPINE. [Suspect]
     Active Substance: MIRTAZAPINE
     Dosage: UNK
     Route: 065
     Dates: start: 20030318, end: 200310
  19. PAROXETINE TABLET [Suspect]
     Active Substance: PAROXETINE
     Indication: DEPRESSION
     Dosage: 40 MG, QD
     Route: 048
     Dates: start: 20011017, end: 20011211
  20. SEROXAT [Suspect]
     Active Substance: PAROXETINE HYDROCHLORIDE
     Dosage: UNK
     Route: 048
     Dates: start: 20011106
  21. SEROXAT [Suspect]
     Active Substance: PAROXETINE HYDROCHLORIDE
     Dosage: 20 MG, QD
     Route: 048
     Dates: start: 2001
  22. SINEMET [Concomitant]
     Active Substance: CARBIDOPA\LEVODOPA
  23. STALEVO                            /01530202/ [Suspect]
     Active Substance: LEVOCETIRIZINE DIHYDROCHLORIDE
     Indication: PARKINSON^S DISEASE
     Dosage: UNK
     Route: 065
  24. SEROXAT [Suspect]
     Active Substance: PAROXETINE HYDROCHLORIDE
     Dosage: UNK
     Route: 048
     Dates: start: 20011116
  25. SEROXAT [Suspect]
     Active Substance: PAROXETINE HYDROCHLORIDE
     Dosage: UNK
     Route: 048
     Dates: start: 20011211, end: 20011217
  26. PROPRANOLOL [Concomitant]
     Active Substance: PROPRANOLOL HYDROCHLORIDE
     Indication: ANXIETY

REACTIONS (30)
  - Hallucination [Unknown]
  - Terminal insomnia [Unknown]
  - Panic attack [Unknown]
  - Suicidal ideation [Unknown]
  - Depression [Unknown]
  - Sleep disorder [Unknown]
  - Paraesthesia [Unknown]
  - Restlessness [Unknown]
  - Psychomotor hyperactivity [Unknown]
  - Abnormal dreams [Unknown]
  - Withdrawal syndrome [Unknown]
  - Anxiety disorder [Unknown]
  - Apathy [Unknown]
  - Weight decreased [Unknown]
  - Intrusive thoughts [Unknown]
  - Hyperhidrosis [Unknown]
  - Palpitations [Unknown]
  - Trismus [Unknown]
  - Negative thoughts [Unknown]
  - Decreased appetite [Unknown]
  - Nightmare [Unknown]
  - Tremor [Unknown]
  - Agitation [Unknown]
  - Muscle spasms [Unknown]
  - Decreased interest [Unknown]
  - Feeling guilty [Unknown]
  - Anxiety [Unknown]
  - Parkinson^s disease [Fatal]
  - Aggression [Unknown]
  - Tearfulness [Unknown]

NARRATIVE: CASE EVENT DATE: 200111
